FAERS Safety Report 8514998-3 (Version None)
Quarter: 2012Q3

REPORT INFORMATION
  Report Type: 
  Country: None (occurrence: None)
  Receive Date: 20120717
  Receipt Date: 20120711
  Transmission Date: 20120928
  Serious: Yes (Other)
  Sender: FDA-Public Use
  Company Number: US-CELGENEUS-163-20785-12071218

PATIENT
  Sex: Male

DRUGS (2)
  1. THALOMID [Suspect]
     Indication: MULTIPLE MYELOMA
     Dosage: 400
     Route: 048
     Dates: start: 20110801
  2. THALOMID [Suspect]
     Dosage: 200
     Route: 048
     Dates: start: 20110901, end: 20120101

REACTIONS (2)
  - DRUG INEFFECTIVE [None]
  - CARDIAC DISORDER [None]
